FAERS Safety Report 8974207 (Version 1)
Quarter: 2012Q4

REPORT INFORMATION
  Report Type: Spontaneous
  Country: IL (occurrence: None)
  Receive Date: 20121214
  Receipt Date: 20121214
  Transmission Date: 20130627
  Serious: Yes (Hospitalization, Other)
  Sender: FDA-Public Use
  Company Number: 2011RR-51191

PATIENT
  Age: 54 Year
  Sex: Female

DRUGS (1)
  1. ETODOLAC [Suspect]
     Indication: LOW BACK PAIN
     Dosage: 800 mg/day,  Unknown

REACTIONS (2)
  - Colitis microscopic [None]
  - Weight decreased [None]
